FAERS Safety Report 14480086 (Version 2)
Quarter: 2018Q1

REPORT INFORMATION
  Report Type: Report from Study
  Country: US (occurrence: US)
  Receive Date: 20180202
  Receipt Date: 20180321
  Transmission Date: 20180509
  Serious: Yes (Disabling, Other)
  Sender: FDA-Public Use
  Company Number: US-REGENERON PHARMACEUTICALS, INC.-2018-12414

PATIENT

DRUGS (2)
  1. EYLEA [Suspect]
     Active Substance: AFLIBERCEPT
     Indication: CHOROIDAL NEOVASCULARISATION
  2. EYLEA [Suspect]
     Active Substance: AFLIBERCEPT
     Indication: NEOVASCULAR AGE-RELATED MACULAR DEGENERATION
     Dosage: EVERY 4 WEEKS, OS
     Route: 031

REACTIONS (5)
  - Blindness unilateral [Unknown]
  - Exposure to contaminated device [Unknown]
  - Eye infection bacterial [Unknown]
  - Blindness unilateral [Unknown]
  - Vitrectomy [Unknown]

NARRATIVE: CASE EVENT DATE: 20180108
